FAERS Safety Report 19241472 (Version 1)
Quarter: 2021Q2

REPORT INFORMATION
  Report Type: Spontaneous
  Country: US (occurrence: US)
  Receive Date: 20210511
  Receipt Date: 20210511
  Transmission Date: 20210717
  Serious: No
  Sender: FDA-Public Use
  Company Number: None

PATIENT
  Age: 91 Year
  Sex: Female
  Weight: 48.6 kg

DRUGS (3)
  1. JAKAFI [Concomitant]
     Active Substance: RUXOLITINIB
  2. HYDROXYUREA. [Suspect]
     Active Substance: HYDROXYUREA
  3. JAKAFI [Suspect]
     Active Substance: RUXOLITINIB
     Route: 048

REACTIONS (2)
  - Nausea [None]
  - Gastric disorder [None]

NARRATIVE: CASE EVENT DATE: 20210507
